FAERS Safety Report 14672471 (Version 9)
Quarter: 2018Q2

REPORT INFORMATION
  Report Type: Spontaneous
  Country: US (occurrence: US)
  Receive Date: 20180323
  Receipt Date: 20180607
  Transmission Date: 20180711
  Serious: Yes (Other)
  Sender: FDA-Public Use
  Company Number: US-PFIZER INC-2018116957

PATIENT
  Age: 57 Year
  Sex: Male
  Weight: 128 kg

DRUGS (42)
  1. SUTENT [Suspect]
     Active Substance: SUNITINIB MALATE
     Dosage: 50 MG, CYCLIC [2 WEEKS ON/1 WEEK OFF]
     Dates: start: 20180601
  2. OMEGA 3 [Concomitant]
     Active Substance: OMEGA-3 FATTY ACIDS
     Dosage: UNK
  3. ALDACTONE [Concomitant]
     Active Substance: SPIRONOLACTONE
     Dosage: UNK
  4. COREG [Concomitant]
     Active Substance: CARVEDILOL
     Dosage: UNK
  5. ACETAMINOPHEN. [Concomitant]
     Active Substance: ACETAMINOPHEN
     Dosage: UNK
  6. FLOVENT HFA [Concomitant]
     Active Substance: FLUTICASONE PROPIONATE
     Dosage: UNK
  7. VITAMIN B12 [Concomitant]
     Active Substance: CYANOCOBALAMIN
     Dosage: UNK
  8. SUTENT [Suspect]
     Active Substance: SUNITINIB MALATE
     Dosage: 50 MG, CYCLIC [2 WEEKS ON/1 WEEK OFF]
     Dates: start: 20180309
  9. PROBIOTIC [Concomitant]
     Active Substance: PROBIOTICS NOS
     Dosage: UNK
  10. KRISTALOSE [Concomitant]
     Active Substance: LACTULOSE
     Dosage: UNK
  11. TYVASO [Concomitant]
     Active Substance: TREPROSTINIL
     Dosage: UNK
  12. TRADJENTA [Concomitant]
     Active Substance: LINAGLIPTIN
     Dosage: UNK
  13. FERROUS SULFATE. [Concomitant]
     Active Substance: FERROUS SULFATE
     Dosage: UNK
  14. NARCAN [Concomitant]
     Active Substance: NALOXONE HYDROCHLORIDE
     Dosage: UNK
  15. EZETIMIBE. [Concomitant]
     Active Substance: EZETIMIBE
     Dosage: UNK
  16. INSULIN [Concomitant]
     Active Substance: INSULIN NOS
     Dosage: UNK
  17. SUTENT [Suspect]
     Active Substance: SUNITINIB MALATE
     Indication: METASTATIC RENAL CELL CARCINOMA
     Dosage: 50 MG, CYCLIC [DAILY FOR 28 DAYS ON/14 DAYS OFF]
     Route: 048
     Dates: start: 20180309
  18. VIAGRA [Concomitant]
     Active Substance: SILDENAFIL CITRATE
     Dosage: UNK
  19. VITAMIN D [Concomitant]
     Active Substance: CHOLECALCIFEROL
     Dosage: UNK
  20. POTASSIUM CHLORIDE. [Concomitant]
     Active Substance: POTASSIUM CHLORIDE
     Dosage: UNK
  21. COMPAZINE [Concomitant]
     Active Substance: PROCHLORPERAZINE MALEATE
     Dosage: UNK
  22. BENADRYL [Concomitant]
     Active Substance: DIPHENHYDRAMINE HYDROCHLORIDE
     Dosage: UNK, AS NEEDED
  23. ZOFRAN [Concomitant]
     Active Substance: ONDANSETRON HYDROCHLORIDE
     Dosage: UNK
  24. LANSOPRAZOLE. [Concomitant]
     Active Substance: LANSOPRAZOLE
     Dosage: UNK
  25. BUMETANIDE. [Concomitant]
     Active Substance: BUMETANIDE
     Dosage: UNK
  26. MAGNESIUM OXIDE. [Concomitant]
     Active Substance: MAGNESIUM OXIDE
     Dosage: UNK
  27. GABAPENTIN. [Concomitant]
     Active Substance: GABAPENTIN
     Dosage: UNK
  28. ULORIC [Concomitant]
     Active Substance: FEBUXOSTAT
     Dosage: UNK
  29. UPTRAVI [Concomitant]
     Active Substance: SELEXIPAG
     Dosage: UNK
  30. VENTOLIN HFA [Concomitant]
     Active Substance: ALBUTEROL SULFATE
     Dosage: UNK
  31. XIFAXAN [Concomitant]
     Active Substance: RIFAXIMIN
     Dosage: UNK
  32. ZANTAC [Concomitant]
     Active Substance: RANITIDINE HYDROCHLORIDE
     Dosage: UNK
  33. REQUIP [Concomitant]
     Active Substance: ROPINIROLE HYDROCHLORIDE
     Dosage: UNK
  34. CARVEDILOL. [Concomitant]
     Active Substance: CARVEDILOL
     Dosage: UNK
  35. ZETIA [Concomitant]
     Active Substance: EZETIMIBE
     Dosage: UNK
  36. OXYCODONE [Concomitant]
     Active Substance: OXYCODONE
     Dosage: UNK, AS NEEDED
  37. ESOMEPRAZOLE MAGNESIUM. [Concomitant]
     Active Substance: ESOMEPRAZOLE MAGNESIUM
     Dosage: UNK
  38. ROPINIROLE. [Concomitant]
     Active Substance: ROPINIROLE
     Dosage: UNK
  39. TRAMADOL. [Concomitant]
     Active Substance: TRAMADOL
     Dosage: UNK, AS NEEDED
  40. PROTONIX [Concomitant]
     Active Substance: PANTOPRAZOLE SODIUM
     Dosage: UNK
  41. AMITRIPTYLINE HCL [Concomitant]
     Active Substance: AMITRIPTYLINE
     Dosage: UNK
  42. FLUTICASONE PROPIONATE. [Concomitant]
     Active Substance: FLUTICASONE PROPIONATE
     Dosage: UNK

REACTIONS (24)
  - Platelet count decreased [Unknown]
  - Haematocrit decreased [Unknown]
  - Decreased appetite [Unknown]
  - Condition aggravated [Recovering/Resolving]
  - Glossodynia [Unknown]
  - Dyspepsia [Unknown]
  - Neoplasm progression [Unknown]
  - Abdominal pain [Recovered/Resolved]
  - Diarrhoea [Recovering/Resolving]
  - Tongue discomfort [Unknown]
  - Blood glucose increased [Recovering/Resolving]
  - White blood cell count decreased [Unknown]
  - Pruritus [Recovering/Resolving]
  - Blood pressure increased [Recovering/Resolving]
  - Stomatitis [Not Recovered/Not Resolved]
  - Fatigue [Unknown]
  - Red blood cell count decreased [Unknown]
  - Nausea [Unknown]
  - Vomiting [Unknown]
  - Insomnia [Unknown]
  - Blood urine present [Recovered/Resolved]
  - Dysgeusia [Unknown]
  - Blood creatinine increased [Unknown]
  - Headache [Unknown]

NARRATIVE: CASE EVENT DATE: 2018
